FAERS Safety Report 6735546-4 (Version None)
Quarter: 2010Q2

REPORT INFORMATION
  Report Type: 
  Country: None (occurrence: None)
  Receive Date: 20100521
  Receipt Date: 20100513
  Transmission Date: 20101027
  Serious: Yes (Hospitalization)
  Sender: FDA-Public Use
  Company Number: GB-TEVA-234631ISR

PATIENT
  Age: 58 Year
  Sex: Male

DRUGS (3)
  1. CIPROFLOXACIN [Suspect]
     Indication: WOUND INFECTION
     Route: 048
  2. ATORVASTATIN [Suspect]
     Indication: DRUG USE FOR UNKNOWN INDICATION
  3. FUSIDIC ACID/FUSIDATE DIOLAMINE/SODIUM FUSIDATE [Suspect]
     Indication: WOUND INFECTION

REACTIONS (2)
  - DRUG INTERACTION [None]
  - RHABDOMYOLYSIS [None]
